FAERS Safety Report 19476998 (Version 1)
Quarter: 2021Q2

REPORT INFORMATION
  Report Type: Spontaneous
  Country: US (occurrence: US)
  Receive Date: 20210630
  Receipt Date: 20210630
  Transmission Date: 20210717
  Serious: Yes (Other)
  Sender: FDA-Public Use
  Company Number: US-INDIVIOR US-INDV-130178-2021

PATIENT

DRUGS (2)
  1. VIVITROL [Suspect]
     Active Substance: NALTREXONE
     Indication: DRUG DEPENDENCE
     Dosage: 380 MILLIGRAM, QMO
     Route: 030
     Dates: start: 20210331
  2. SUBOXONE [Suspect]
     Active Substance: BUPRENORPHINE HYDROCHLORIDE\NALOXONE HYDROCHLORIDE
     Indication: DRUG DEPENDENCE
     Dosage: UNK
     Route: 065

REACTIONS (22)
  - Emotional distress [Unknown]
  - Medical induction of coma [Recovered/Resolved]
  - Bone pain [Unknown]
  - Influenza like illness [Unknown]
  - Dehydration [Unknown]
  - Hallucination [Unknown]
  - Suicidal ideation [Unknown]
  - Anger [Unknown]
  - Confusional state [Unknown]
  - Vomiting [Unknown]
  - Tachycardia [Unknown]
  - Delusion [Unknown]
  - Rhabdomyolysis [Unknown]
  - Blood pressure decreased [Recovered/Resolved]
  - Haematotoxicity [Unknown]
  - Pain in extremity [Unknown]
  - Diarrhoea [Unknown]
  - Insomnia [Unknown]
  - Agitation [Unknown]
  - Tremor [Unknown]
  - Drug withdrawal syndrome [Not Recovered/Not Resolved]
  - Depression [Unknown]
